FAERS Safety Report 5788500-3 (Version None)
Quarter: 2008Q2

REPORT INFORMATION
  Report Type: 
  Country: None (occurrence: None)
  Receive Date: 20080625
  Receipt Date: 20080625
  Transmission Date: 20081010
  Serious: No
  Sender: FDA-Public Use
  Company Number: None

PATIENT
  Age: 60 Year
  Sex: Female
  Weight: 70.3075 kg

DRUGS (1)
  1. DIGITEK  0.25 MG  MYLAN BERT [Suspect]
     Indication: SUPRAVENTRICULAR TACHYCARDIA
     Dosage: 1 TABLET  DAILY-AM
     Dates: start: 20060301, end: 20080401

REACTIONS (1)
  - INCORRECT DOSE ADMINISTERED [None]
